FAERS Safety Report 12919373 (Version 1)
Quarter: 2016Q4

REPORT INFORMATION
  Report Type: Spontaneous
  Country: US (occurrence: US)
  Receive Date: 20161103
  Receipt Date: 20161103
  Transmission Date: 20170207
  Serious: No
  Sender: FDA-Public Use
  Company Number: None

PATIENT
  Age: 70 Year
  Sex: Male
  Weight: 61.8 kg

DRUGS (1)
  1. FILGRASTIM [Suspect]
     Active Substance: FILGRASTIM
     Indication: NEUTROPENIA
     Route: 058
     Dates: start: 20161025, end: 20161025

REACTIONS (16)
  - Vocal cord disorder [None]
  - Dysphagia [None]
  - Stridor [None]
  - Diarrhoea [None]
  - Neutropenia [None]
  - Anaphylactic reaction [None]
  - Laryngospasm [None]
  - Gastrooesophageal reflux disease [None]
  - Face oedema [None]
  - Cough [None]
  - Respiratory distress [None]
  - Hypersensitivity [None]
  - Aspiration [None]
  - Sepsis [None]
  - Dehydration [None]
  - Choking [None]

NARRATIVE: CASE EVENT DATE: 20161025
